FAERS Safety Report 5347172-2 (Version None)
Quarter: 2007Q2

REPORT INFORMATION
  Report Type: 
  Country: None (occurrence: None)
  Receive Date: 20070604
  Receipt Date: 20070604
  Transmission Date: 20071010
  Serious: Yes (Other)
  Sender: FDA-Public Use
  Company Number: None

PATIENT
  Sex: Female
  Weight: 48.3081 kg

DRUGS (2)
  1. WELLBUTRIN XL [Suspect]
     Dosage: 150MG ONE QAM PO
     Route: 048
     Dates: start: 20070524
  2. WELLBUTRIN XL [Suspect]
     Dosage: 150MG ONE QAM PO
     Route: 048
     Dates: start: 20070530

REACTIONS (4)
  - BACK PAIN [None]
  - MOOD SWINGS [None]
  - NECK PAIN [None]
  - TREMOR [None]
